FAERS Safety Report 8021629-8 (Version None)
Quarter: 2012Q1

REPORT INFORMATION
  Report Type: 
  Country: None (occurrence: None)
  Receive Date: 20120104
  Receipt Date: 20120104
  Transmission Date: 20120608
  Serious: Yes (Other)
  Sender: FDA-Public Use
  Company Number: None

PATIENT
  Age: 65 Year
  Sex: Male
  Weight: 74.842 kg

DRUGS (1)
  1. COLD RELIEF ORAL SPRAY [Suspect]
     Indication: NASOPHARYNGITIS
     Dosage: 4-5 SPRAYS
     Route: 048
     Dates: start: 20111224, end: 20111224

REACTIONS (3)
  - AGEUSIA [None]
  - BURNING SENSATION [None]
  - ANOSMIA [None]
